FAERS Safety Report 19513388 (Version 1)
Quarter: 2021Q3

REPORT INFORMATION
  Report Type: Spontaneous
  Country: US (occurrence: US)
  Receive Date: 20210709
  Receipt Date: 20210709
  Transmission Date: 20211014
  Serious: Yes (Hospitalization)
  Sender: FDA-Public Use
  Company Number: US-CHIESI-2021CHF03363

PATIENT
  Age: 17 Year
  Sex: Female
  Weight: 72 kg

DRUGS (9)
  1. FLOVENT [Concomitant]
     Active Substance: FLUTICASONE PROPIONATE
     Indication: PRODUCT USED FOR UNKNOWN INDICATION
     Dosage: UNK
  2. FERRIPROX [Suspect]
     Active Substance: DEFERIPRONE
     Indication: TRANSFUSION
  3. FERRIPROX [Suspect]
     Active Substance: DEFERIPRONE
     Indication: HAEMOCHROMATOSIS
  4. PROAIR HFA [Concomitant]
     Active Substance: ALBUTEROL SULFATE
     Indication: PRODUCT USED FOR UNKNOWN INDICATION
     Dosage: UNK
  5. FERRIPROX [Suspect]
     Active Substance: DEFERIPRONE
     Indication: ANAEMIA
     Dosage: 2500 MILLIGRAM, TID
     Route: 048
     Dates: start: 20180324
  6. ONDANSETRON [Concomitant]
     Active Substance: ONDANSETRON
     Indication: PRODUCT USED FOR UNKNOWN INDICATION
     Dosage: UNK
  7. FLONASE [Concomitant]
     Active Substance: FLUTICASONE PROPIONATE
     Indication: PRODUCT USED FOR UNKNOWN INDICATION
     Dosage: UNK
  8. MIRALAX [Concomitant]
     Active Substance: POLYETHYLENE GLYCOL 3350
     Indication: PRODUCT USED FOR UNKNOWN INDICATION
     Dosage: UNK
  9. ZYRTEC [Concomitant]
     Active Substance: CETIRIZINE HYDROCHLORIDE
     Indication: PRODUCT USED FOR UNKNOWN INDICATION
     Dosage: UNK

REACTIONS (1)
  - Bone marrow transplant [Recovering/Resolving]

NARRATIVE: CASE EVENT DATE: 20210618
